FAERS Safety Report 4606518-0 (Version None)
Quarter: 2005Q2

REPORT INFORMATION
  Report Type: 
  Country: None (occurrence: None)
  Receive Date: 20050223
  Receipt Date: 20041007
  Transmission Date: 20051028
  Serious: Yes (Life-Threatening, Hospitalization)
  Sender: FDA-Public Use
  Company Number: WAES  0410USA01089

PATIENT
  Age: 74 Year
  Sex: Female

DRUGS (6)
  1. ZOCOR [Suspect]
     Indication: LIPIDS INCREASED
     Dosage: 40 MG/DAILY/PO
     Route: 048
     Dates: start: 20010801, end: 20040802
  2. ZOCOR [Suspect]
     Indication: LIPIDS INCREASED
     Dosage: 80 MG/DAILY/PO
     Route: 048
     Dates: start: 20040803, end: 20040921
  3. LASIX [Concomitant]
  4. ALLOPURINOL [Concomitant]
  5. METOPROLOL TARTRATE [Concomitant]
  6. VERAPAMIL [Concomitant]

REACTIONS (1)
  - RHABDOMYOLYSIS [None]
